FAERS Safety Report 7428405-5 (Version None)
Quarter: 2011Q2

REPORT INFORMATION
  Report Type: 
  Country: None (occurrence: None)
  Receive Date: 20110421
  Receipt Date: 20110406
  Transmission Date: 20111010
  Serious: Yes (Other)
  Sender: FDA-Public Use
  Company Number: PHHY2011BE29028

PATIENT
  Sex: Female
  Weight: 59 kg

DRUGS (4)
  1. INFLUVAC [Concomitant]
  2. ACLASTA [Suspect]
     Indication: OSTEOPOROSIS
     Dosage: 5 MG, UNK
     Route: 042
     Dates: start: 20110223
  3. LORMETAZEPAM [Concomitant]
  4. D-CURE [Concomitant]

REACTIONS (16)
  - DIARRHOEA [None]
  - DECREASED APPETITE [None]
  - DRY MOUTH [None]
  - SYNCOPE [None]
  - MYALGIA [None]
  - DIZZINESS [None]
  - FULL BLOOD COUNT DECREASED [None]
  - MALAISE [None]
  - VOMITING [None]
  - HEADACHE [None]
  - UPPER RESPIRATORY TRACT INFECTION [None]
  - CHILLS [None]
  - BLOOD PRESSURE DECREASED [None]
  - INFLUENZA LIKE ILLNESS [None]
  - PYREXIA [None]
  - NAUSEA [None]
